FAERS Safety Report 13226318 (Version 1)
Quarter: 2017Q1

REPORT INFORMATION
  Report Type: Spontaneous
  Country: US (occurrence: US)
  Receive Date: 20170213
  Receipt Date: 20170213
  Transmission Date: 20170428
  Serious: Yes (Other)
  Sender: FDA-Public Use
  Company Number: None

PATIENT
  Age: 73 Year
  Sex: Female
  Weight: 65.77 kg

DRUGS (4)
  1. NINLARO [Suspect]
     Active Substance: IXAZOMIB
     Indication: PLASMA CELL MYELOMA
     Dosage: 4 MG PO (ONE DOSE GIVEN) 1, 8, 15 OF EVERY 28 DAY CYCLE
     Route: 048
     Dates: start: 20161129
  2. REVLIMID (LEVOLIDAMIDE) [Concomitant]
  3. DECADRON [Concomitant]
     Active Substance: DEXAMETHASONE
  4. ACYCLOVIR (ZOVIRAX) [Concomitant]

REACTIONS (1)
  - Rash erythematous [None]

NARRATIVE: CASE EVENT DATE: 20161202
